FAERS Safety Report 8484182-0 (Version None)
Quarter: 2012Q3

REPORT INFORMATION
  Report Type: 
  Country: None (occurrence: None)
  Receive Date: 20120703
  Receipt Date: 20120629
  Transmission Date: 20120928
  Serious: No
  Sender: FDA-Public Use
  Company Number: US-BAYER-2012-065061

PATIENT
  Age: 43 Year
  Sex: Female

DRUGS (6)
  1. OXYBUTYNIN [Concomitant]
     Dosage: 10 MG, UNK
  2. BETASERON [Suspect]
     Dosage: 0.25 MG, QOD
     Route: 058
  3. AMANTADINE HCL [Concomitant]
     Dosage: 100 MG, UNK
  4. CALCIUM +VIT D [Concomitant]
  5. VICODIN ES [Concomitant]
  6. IBUPROFEN [Concomitant]
     Dosage: 200 MG, UNK

REACTIONS (2)
  - INJECTION SITE HAEMATOMA [None]
  - INJECTION SITE INFLAMMATION [None]
